FAERS Safety Report 15106693 (Version 1)
Quarter: 2018Q3

REPORT INFORMATION
  Report Type: Spontaneous
  Country: US (occurrence: US)
  Receive Date: 20180704
  Receipt Date: 20180704
  Transmission Date: 20181010
  Serious: No
  Sender: FDA-Public Use
  Company Number: US-SA-2018SA175984

PATIENT

DRUGS (5)
  1. ORENCIA [Suspect]
     Active Substance: ABATACEPT
     Dosage: UNK
     Dates: start: 201711, end: 201804
  2. CIMZIA [Suspect]
     Active Substance: CERTOLIZUMAB PEGOL
  3. ARAVA [Suspect]
     Active Substance: LEFLUNOMIDE
  4. ELIQUIS [Suspect]
     Active Substance: APIXABAN
     Indication: PRODUCT USED FOR UNKNOWN INDICATION
  5. ENBREL [Suspect]
     Active Substance: ETANERCEPT

REACTIONS (1)
  - Drug interaction [Unknown]
